FAERS Safety Report 11484678 (Version 1)
Quarter: 2015Q3

REPORT INFORMATION
  Report Type: Spontaneous
  Country: US (occurrence: US)
  Receive Date: 20150909
  Receipt Date: 20150909
  Transmission Date: 20151125
  Serious: No
  Sender: FDA-Public Use
  Company Number: US-GLAXOSMITHKLINE-US2015GSK121854

PATIENT
  Age: 78 Year
  Sex: Female

DRUGS (1)
  1. ADVAIR DISKUS [Suspect]
     Active Substance: FLUTICASONE PROPIONATE\SALMETEROL XINAFOATE
     Indication: CHRONIC OBSTRUCTIVE PULMONARY DISEASE

REACTIONS (9)
  - Mood swings [Not Recovered/Not Resolved]
  - Skin abrasion [Unknown]
  - Irritability [Not Recovered/Not Resolved]
  - Adverse drug reaction [Unknown]
  - Weight increased [Not Recovered/Not Resolved]
  - Increased tendency to bruise [Not Recovered/Not Resolved]
  - Skin atrophy [Not Recovered/Not Resolved]
  - Gait disturbance [Unknown]
  - Wrong patient received medication [Unknown]
